FAERS Safety Report 6467546-6 (Version None)
Quarter: 2009Q4

REPORT INFORMATION
  Report Type: 
  Country: None (occurrence: None)
  Receive Date: 20091202
  Receipt Date: 20091105
  Transmission Date: 20100525
  Serious: No
  Sender: FDA-Public Use
  Company Number: US-BAYER-200916563BCC

PATIENT
  Sex: Female

DRUGS (2)
  1. ALEVE [Suspect]
     Indication: LOWER LIMB FRACTURE
     Route: 048
  2. UNKNOWN ASPIRIN REGIMEN [Concomitant]
     Route: 065

REACTIONS (1)
  - PALPITATIONS [None]
